FAERS Safety Report 13526268 (Version 2)
Quarter: 2021Q1

REPORT INFORMATION
  Report Type: Other
  Country: CA (occurrence: CA)
  Receive Date: 20170509
  Receipt Date: 20210308
  Transmission Date: 20210419
  Serious: Yes (Other)
  Sender: FDA-Public Use
  Company Number: CA-ROCHE-1929653

PATIENT
  Sex: Female

DRUGS (3)
  1. TRASTUZUMAB. [Suspect]
     Active Substance: TRASTUZUMAB
     Indication: BREAST CANCER METASTATIC
     Route: 065
  2. ENZALUTAMIDE [Suspect]
     Active Substance: ENZALUTAMIDE
     Indication: BREAST CANCER METASTATIC
     Route: 065
  3. TRASTUZUMAB. [Suspect]
     Active Substance: TRASTUZUMAB
     Dosage: FOLLOWED BY EITHER INTRAVENOUS (6 MG/KG) OR SUBCUTANEOUS (600 MG/5 ML) ADMINISTRATION
     Route: 042

REACTIONS (11)
  - Pyrexia [Unknown]
  - Fatigue [Unknown]
  - Back pain [Unknown]
  - Thrombocytopenia [Unknown]
  - Urinary retention [Unknown]
  - Pneumonia [Unknown]
  - Pulmonary oedema [Unknown]
  - Abdominal pain [Unknown]
  - Dyspnoea [Unknown]
  - Vomiting [Unknown]
  - Infection [Unknown]
